FAERS Safety Report 9037189 (Version 1)
Quarter: 2013Q1

REPORT INFORMATION
  Report Type: Spontaneous
  Country: US (occurrence: None)
  Receive Date: 20130123
  Receipt Date: 20130123
  Transmission Date: 20140127
  Serious: Yes (Death)
  Sender: FDA-Public Use
  Company Number: None

PATIENT
  Age: 36 Year
  Sex: Male
  Weight: 88.45 kg

DRUGS (1)
  1. CHANTIX PFIZER [Suspect]
     Indication: SMOKING CESSATION THERAPY
     Dosage: 1 MG -AFTER START WEEK- BID PO
     Route: 048
     Dates: start: 20120615, end: 20120928

REACTIONS (1)
  - Completed suicide [None]
